FAERS Safety Report 5242112-9 (Version None)
Quarter: 2007Q1

REPORT INFORMATION
  Report Type: 
  Country: None (occurrence: None)
  Receive Date: 20070212
  Receipt Date: 20070130
  Transmission Date: 20070707
  Serious: Yes (Hospitalization)
  Sender: FDA-Public Use
  Company Number: 9742

PATIENT
  Age: 62 Year
  Sex: Male
  Weight: 109.7705 kg

DRUGS (7)
  1. NITROGLYCERIN [Suspect]
     Indication: ANGINA PECTORIS
     Dosage: PRN ORALLY
     Route: 048
  2. METOPROLOL SUCCINATE [Concomitant]
  3. ZOCOR [Concomitant]
  4. ASPIRIN [Concomitant]
  5. PLAVIX [Concomitant]
  6. LISINOPRIL [Concomitant]
  7. ADVAIR INHALER [Concomitant]

REACTIONS (3)
  - DRUG INEFFECTIVE [None]
  - MYOCARDIAL INFARCTION [None]
  - PHARMACEUTICAL PRODUCT COMPLAINT [None]
